FAERS Safety Report 16765078 (Version 1)
Quarter: 2019Q3

REPORT INFORMATION
  Report Type: Spontaneous
  Country: JP (occurrence: JP)
  Receive Date: 20190903
  Receipt Date: 20190903
  Transmission Date: 20191005
  Serious: Yes (Other)
  Sender: FDA-Public Use
  Company Number: JP-ROCHE-2396181

PATIENT
  Age: 50 Year
  Sex: Female

DRUGS (1)
  1. RITUXAN [Suspect]
     Active Substance: RITUXIMAB
     Indication: MICROSCOPIC POLYANGIITIS
     Route: 042

REACTIONS (3)
  - Alanine aminotransferase increased [Recovered/Resolved]
  - Pulmonary alveolar haemorrhage [Unknown]
  - Aspartate aminotransferase increased [Recovered/Resolved]
